FAERS Safety Report 8764855 (Version 4)
Quarter: 2013Q1

REPORT INFORMATION
  Report Type: Report from Study
  Country: JP (occurrence: JP)
  Receive Date: 20120901
  Receipt Date: 20130313
  Transmission Date: 20140127
  Serious: Yes (Hospitalization, Other)
  Sender: FDA-Public Use
  Company Number: JP-MERCK-2012SP013605

PATIENT
  Age: 59 Year
  Sex: Female
  Weight: 65 kg

DRUGS (24)
  1. REBETOL [Suspect]
     Indication: HEPATITIS C
     Dosage: CUMULATIVE DOSE: 1200 MG
     Route: 048
     Dates: start: 20120221, end: 20120225
  2. REBETOL [Suspect]
     Dosage: CUMULATIVE DOSE: 1200 MG
     Route: 048
     Dates: start: 20120228, end: 20120228
  3. REBETOL [Suspect]
     Dosage: CUMULATIVE DOSE: 1200 MG
     Route: 048
     Dates: start: 20120229, end: 20120307
  4. REBETOL [Suspect]
     Dosage: CUMULATIVE DOSE: 1200 MG
     Route: 048
     Dates: start: 20120308, end: 20120404
  5. REBETOL [Suspect]
     Dosage: CUMULATIVE DOSE: 1200 MG
     Route: 048
     Dates: start: 20120405, end: 20120412
  6. REBETOL [Suspect]
     Dosage: CUMULATIVE DOSE: 1200 MG
     Route: 048
     Dates: start: 20120514, end: 20120520
  7. REBETOL [Suspect]
     Dosage: CUMULATIVE DOSE: 1200 MG
     Route: 048
     Dates: start: 20120521, end: 20120620
  8. REBETOL [Suspect]
     Dosage: CUMULATIVE DOSE: 1200 MG
     Route: 048
     Dates: start: 20120621, end: 20120809
  9. PEGINTRON [Suspect]
     Indication: HEPATITIS C
     Dosage: 1.24 MICROGRAM PER KILOGRAM, QW
     Route: 058
     Dates: start: 20120221, end: 20120221
  10. PEGINTRON [Suspect]
     Dosage: 0.77 MICROGRAM PER KILOGRAM, QW
     Route: 058
     Dates: start: 20120301, end: 20120301
  11. PEGINTRON [Suspect]
     Dosage: 0.62 MICROGRAM PER KILOGRAM, QW
     Route: 058
     Dates: start: 20120308, end: 20120322
  12. PEGINTRON [Suspect]
     Dosage: 0.77 MICROGRAM PER KILOGRAM, QW
     Route: 058
     Dates: start: 20120329, end: 20120419
  13. PEGINTRON [Suspect]
     Dosage: 0.47 MICROGRAM PER KILOGRAM, QW
     Route: 058
     Dates: start: 20120510, end: 20120510
  14. PEGINTRON [Suspect]
     Dosage: 0.79 MICROGRAM PER KILOGRAM, QW
     Route: 058
     Dates: start: 20120517, end: 20120531
  15. PEGINTRON [Suspect]
     Dosage: 1.1 MICROGRAM PER KILOGRAM, QW
     Route: 058
     Dates: start: 20120607, end: 20120607
  16. PEGINTRON [Suspect]
     Dosage: 1.27 MICROGRAM PER KILOGRAM, QW
     Route: 058
     Dates: start: 20120614, end: 20120705
  17. PEGINTRON [Suspect]
     Dosage: 1.43 MICROGRAM PER KILOGRAM, QW
     Route: 058
     Dates: start: 20120712, end: 20120802
  18. TELAVIC [Suspect]
     Indication: HEPATITIS C
     Dosage: 2250 MG, QD
     Route: 048
     Dates: start: 20120221, end: 20120225
  19. TELAVIC [Suspect]
     Dosage: 750 MG, QD
     Route: 048
     Dates: start: 20120302, end: 20120307
  20. TELAVIC [Suspect]
     Dosage: 1500 MG, QD
     Route: 048
     Dates: start: 20120308, end: 20120412
  21. TELAVIC [Suspect]
     Dosage: 250 MG, QD
     Route: 048
     Dates: start: 20120514, end: 20120628
  22. PROMAC (POLAPREZINC) [Concomitant]
     Indication: GASTRIC ULCER
     Dosage: UPDATE (10-MAY-2012)
     Route: 048
     Dates: start: 20060724
  23. REBAMIPIDE [Concomitant]
     Indication: GASTRIC ULCER
     Dosage: UPDATE (10-MAY-2012): TRADE NAME: UNKNOWN
     Route: 048
     Dates: start: 20111128
  24. ALLEGRA [Concomitant]
     Dosage: UPDATE (08-JUN-2012)
     Route: 048
     Dates: end: 20120531

REACTIONS (8)
  - Delirium [Recovering/Resolving]
  - Somnolence [Recovered/Resolved]
  - Delirium [Recovered/Resolved]
  - Oedema peripheral [Not Recovered/Not Resolved]
  - Hypoalbuminaemia [Recovered/Resolved]
  - Diarrhoea [Recovered/Resolved]
  - Anaemia [Not Recovered/Not Resolved]
  - Thrombocytopenia [Recovering/Resolving]
